FAERS Safety Report 6266866-8 (Version None)
Quarter: 2009Q3

REPORT INFORMATION
  Report Type: 
  Country: None (occurrence: None)
  Receive Date: 20090714
  Receipt Date: 20090708
  Transmission Date: 20100115
  Serious: Yes (Other)
  Sender: FDA-Public Use
  Company Number: NL-BAYER-200924460GPV

PATIENT
  Age: 23 Year

DRUGS (2)
  1. FACTOR VIII, RECOMBINANT [Suspect]
     Indication: FACTOR VIII DEFICIENCY
  2. ANTIBIOTICS [Concomitant]
     Indication: INFECTION

REACTIONS (2)
  - FACTOR VIII INHIBITION [None]
  - HAEMORRHAGE [None]
